FAERS Safety Report 6238960-9 (Version None)
Quarter: 2009Q2

REPORT INFORMATION
  Report Type: 
  Country: None (occurrence: None)
  Receive Date: 20090622
  Receipt Date: 20090609
  Transmission Date: 20091009
  Serious: Yes (Other)
  Sender: FDA-Public Use
  Company Number: PHHY2009GB14567

PATIENT
  Sex: Male

DRUGS (2)
  1. CLOZARIL [Suspect]
     Indication: SCHIZOPHRENIA
     Dosage: 300 MG, UNK
     Route: 048
     Dates: start: 19900101
  2. PRIADEL [Suspect]
     Indication: DEPRESSION
     Dosage: 800 MG, UNK
     Route: 048
     Dates: start: 19900101

REACTIONS (1)
  - HAEMOGLOBIN INCREASED [None]
